FAERS Safety Report 4779084-7 (Version None)
Quarter: 2005Q3

REPORT INFORMATION
  Report Type: 
  Country: None (occurrence: None)
  Receive Date: 20050914
  Receipt Date: 20050606
  Transmission Date: 20060218
  Serious: Yes (Other)
  Sender: FDA-Public Use
  Company Number: 407105

PATIENT
  Sex: Female

DRUGS (3)
  1. BONIVA [Suspect]
     Indication: DRUG USE FOR UNKNOWN INDICATION
     Dosage: 150MG 1 PER MONTH ORAL
     Route: 048
     Dates: start: 20050601
  2. COUMADIN CONTINUING (WARFARIN SODIUM) [Concomitant]
  3. OSCAL CONTINUING (CALCIUM CARBONATE) [Concomitant]

REACTIONS (6)
  - ASTHENIA [None]
  - BLISTER [None]
  - DEPRESSION [None]
  - FATIGUE [None]
  - HEADACHE [None]
  - PRURITUS [None]
